FAERS Safety Report 17005183 (Version 2)
Quarter: 2019Q4

REPORT INFORMATION
  Report Type: Report from Study
  Country: US (occurrence: US)
  Receive Date: 20191107
  Receipt Date: 20191220
  Transmission Date: 20200122
  Serious: Yes (Death, Life-Threatening, Other)
  Sender: FDA-Public Use
  Company Number: NVSC2019US020489

PATIENT
  Sex: Female
  Weight: 36 kg

DRUGS (4)
  1. CYCLOPHOSPHAMIDE. [Concomitant]
     Active Substance: CYCLOPHOSPHAMIDE
     Indication: CHEMOTHERAPY
     Route: 065
  2. KYMRIAH [Suspect]
     Active Substance: TISAGENLECLEUCEL
     Indication: ACUTE LYMPHOCYTIC LEUKAEMIA
     Dosage: 11 ML, ONCE/SINGLE
     Route: 041
     Dates: start: 20191010, end: 20191010
  3. KYMRIAH [Suspect]
     Active Substance: TISAGENLECLEUCEL
     Indication: B-CELL TYPE ACUTE LEUKAEMIA
  4. FLUDARABINE [Concomitant]
     Active Substance: FLUDARABINE PHOSPHATE
     Indication: CHEMOTHERAPY
     Dosage: UNK
     Route: 065

REACTIONS (18)
  - Platelet count decreased [Unknown]
  - Pulmonary toxicity [Unknown]
  - Cardiac failure [Fatal]
  - Nephropathy toxic [Unknown]
  - Haemoglobin decreased [Unknown]
  - Neutrophil count decreased [Unknown]
  - Hepatotoxicity [Unknown]
  - Hypogammaglobulinaemia [Unknown]
  - Metabolic acidosis [Unknown]
  - Hypotension [Unknown]
  - Cytokine release syndrome [Unknown]
  - Pyrexia [Unknown]
  - Haematocrit decreased [Unknown]
  - Hypoxia [Unknown]
  - Cytopenia [Unknown]
  - Cardiotoxicity [Unknown]
  - Treatment failure [Unknown]
  - Lymphocyte count increased [Unknown]
